FAERS Safety Report 11657719 (Version 2)
Quarter: 2015Q4

REPORT INFORMATION
  Report Type: Report from Study
  Country: US (occurrence: US)
  Receive Date: 20151023
  Receipt Date: 20151027
  Transmission Date: 20160304
  Serious: No
  Sender: FDA-Public Use
  Company Number: US-ABBVIE-15P-163-1340225-00

PATIENT
  Age: 33 Year
  Sex: Female
  Weight: 88.53 kg

DRUGS (2)
  1. LUPRON DEPOT [Suspect]
     Active Substance: LEUPROLIDE ACETATE
     Indication: ENDOMETRIOSIS
     Route: 030
     Dates: start: 20141003
  2. NORETHINDRONE. [Concomitant]
     Active Substance: NORETHINDRONE
     Indication: HOT FLUSH

REACTIONS (7)
  - Mood swings [Recovering/Resolving]
  - Infection [Unknown]
  - Vaginal haemorrhage [Not Recovered/Not Resolved]
  - Injury associated with device [Recovered/Resolved]
  - Vaginal haemorrhage [Recovered/Resolved]
  - Irritability [Recovering/Resolving]
  - Abdominal pain [Not Recovered/Not Resolved]

NARRATIVE: CASE EVENT DATE: 2014
